FAERS Safety Report 5541655-8 (Version None)
Quarter: 2007Q4

REPORT INFORMATION
  Report Type: 
  Country: None (occurrence: None)
  Receive Date: 20071210
  Receipt Date: 20071129
  Transmission Date: 20080405
  Serious: Yes (Other)
  Sender: FDA-Public Use
  Company Number: PHEH2007US14877

PATIENT
  Age: 59 Year
  Sex: Female

DRUGS (10)
  1. ZOMETA [Suspect]
     Indication: METASTASES TO BONE
     Dosage: MONTHLY
     Dates: start: 20040329, end: 20070917
  2. ZOMETA [Suspect]
     Dosage: EVERY OTHER MONTH
     Dates: start: 20070901
  3. FEMARA [Suspect]
     Dosage: 2.5 MG, QD
     Dates: start: 20040301
  4. SYNTHROID [Concomitant]
     Indication: HYPOTHYROIDISM
     Dosage: 150 UG, QD
  5. ZOLOFT [Concomitant]
     Indication: DEPRESSION
     Dosage: 50 MG, QD
  6. ZOCOR [Concomitant]
  7. CALCIUM WITH VITAMIN D [Concomitant]
  8. VITAMIN CAP [Concomitant]
  9. FIBERCON [Concomitant]
  10. ALEVE [Concomitant]

REACTIONS (2)
  - BONE DISORDER [None]
  - OSTEONECROSIS [None]
